FAERS Safety Report 8115490-0 (Version None)
Quarter: 2012Q1

REPORT INFORMATION
  Report Type: 
  Country: None (occurrence: None)
  Receive Date: 20120206
  Receipt Date: 20120131
  Transmission Date: 20120608
  Serious: No
  Sender: FDA-Public Use
  Company Number: US-PFIZER INC-2012027495

PATIENT
  Age: 46 Year
  Sex: Female

DRUGS (2)
  1. BENADRYL [Suspect]
     Indication: URTICARIA
     Dosage: 1 BENEDRYL
  2. IBUPROFEN (ADVIL) [Suspect]
     Indication: URTICARIA
     Dosage: 1 ADVIL

REACTIONS (1)
  - DRUG INEFFECTIVE [None]
